FAERS Safety Report 9263690 (Version 2)
Quarter: 2013Q2

REPORT INFORMATION
  Report Type: Report from Study
  Country: CA (occurrence: CA)
  Receive Date: 20130430
  Receipt Date: 20130506
  Transmission Date: 20140414
  Serious: Yes (Life-Threatening)
  Sender: FDA-Public Use
  Company Number: CA-JNJFOC-20130413578

PATIENT
  Age: 61 Year
  Sex: Male
  Weight: 69.4 kg

DRUGS (2)
  1. STELARA [Suspect]
     Indication: PSORIASIS
     Route: 058
     Dates: start: 200608
  2. CORTICOSTEROIDS [Concomitant]

REACTIONS (1)
  - Renal neoplasm [Not Recovered/Not Resolved]
